FAERS Safety Report 26218942 (Version 1)
Quarter: 2025Q4

REPORT INFORMATION
  Report Type: Spontaneous
  Country: US (occurrence: US)
  Receive Date: 20251231
  Receipt Date: 20251231
  Transmission Date: 20260117
  Serious: Yes (Hospitalization)
  Sender: TEVA
  Company Number: US-TEVA-VS-3408668

PATIENT

DRUGS (1)
  1. FENTANYL [Suspect]
     Active Substance: FENTANYL
     Indication: Product used for unknown indication
     Dosage: UNMEASURED?AMOUNTS
     Route: 065

REACTIONS (5)
  - Poor feeding infant [Unknown]
  - Fatigue [Unknown]
  - Discouragement [Unknown]
  - Foetal exposure during pregnancy [Unknown]
  - Stress [Unknown]
